FAERS Safety Report 21569359 (Version 1)
Quarter: 2022Q4

REPORT INFORMATION
  Report Type: Spontaneous
  Country: GR (occurrence: GR)
  Receive Date: 20221109
  Receipt Date: 20221109
  Transmission Date: 20230113
  Serious: Yes (Other)
  Sender: FDA-Public Use
  Company Number: None

PATIENT
  Age: 52 Year
  Sex: Male
  Weight: 75 kg

DRUGS (3)
  1. ATORVASTATIN [Suspect]
     Active Substance: ATORVASTATIN
     Indication: Hypercholesterolaemia
     Dosage: FORM STRENGTH: 40 MG, DURATION: 1 MONTH
     Route: 065
     Dates: start: 201901, end: 201902
  2. ROSUVASTATIN [Suspect]
     Active Substance: ROSUVASTATIN
     Indication: Hypercholesterolaemia
     Dosage: FORM STRENGTH : 10 MG, DURATION: 1 MONTH
     Route: 065
     Dates: start: 201901, end: 201902
  3. SIMVASTATIN [Suspect]
     Active Substance: SIMVASTATIN
     Indication: Hypercholesterolaemia
     Dosage: FORM STRENGTH : 40 MG, DURATION: 4 MONTHS
     Route: 065
     Dates: start: 201802, end: 201806

REACTIONS (5)
  - Gastrointestinal disorder [Recovered/Resolved with Sequelae]
  - Gastrointestinal disorder [Recovered/Resolved]
  - Anal fissure [Recovered/Resolved]
  - Gastrointestinal disorder [Recovered/Resolved]
  - Anal fissure [Recovered/Resolved with Sequelae]

NARRATIVE: CASE EVENT DATE: 20180201
